FAERS Safety Report 4825413-5 (Version None)
Quarter: 2005Q4

REPORT INFORMATION
  Report Type: 
  Country: None (occurrence: None)
  Receive Date: 20051111
  Receipt Date: 20050928
  Transmission Date: 20060501
  Serious: Yes (Hospitalization)
  Sender: FDA-Public Use
  Company Number: US-MERCK-0509USA04458

PATIENT
  Age: 72 Year
  Sex: Male
  Weight: 112 kg

DRUGS (8)
  1. VIOXX [Suspect]
     Indication: ARTHRITIS
     Route: 048
     Dates: start: 20000101, end: 20040101
  2. MAVIK [Concomitant]
     Route: 065
  3. NORVASC [Concomitant]
     Route: 065
  4. PAXIL [Concomitant]
     Route: 065
  5. NITRO-DUR [Concomitant]
     Route: 065
  6. AMARYL [Concomitant]
     Route: 065
  7. HYDROCODONE BITARTRATE [Concomitant]
     Route: 065
  8. LASIX [Concomitant]
     Route: 065

REACTIONS (1)
  - CEREBROVASCULAR ACCIDENT [None]
